FAERS Safety Report 5515095-1 (Version None)
Quarter: 2007Q4

REPORT INFORMATION
  Report Type: 
  Country: None (occurrence: None)
  Receive Date: 20071113
  Receipt Date: 20061221
  Transmission Date: 20080405
  Serious: No
  Sender: FDA-Public Use
  Company Number: A0632976A

PATIENT

DRUGS (1)
  1. COREG [Suspect]
     Indication: CHEST PAIN
     Route: 048

REACTIONS (4)
  - DIZZINESS [None]
  - INSOMNIA [None]
  - MEMORY IMPAIRMENT [None]
  - WEIGHT INCREASED [None]
